FAERS Safety Report 6711499-X (Version None)
Quarter: 2010Q2

REPORT INFORMATION
  Report Type: 
  Country: None (occurrence: None)
  Receive Date: 20100505
  Receipt Date: 20100421
  Transmission Date: 20101027
  Serious: Yes (Hospitalization)
  Sender: FDA-Public Use
  Company Number: PHHY2010NL25400

PATIENT
  Sex: Female

DRUGS (5)
  1. ZOMETA [Suspect]
     Dosage: 4 MG/ 5 ML IN 20 MIN
     Route: 042
  2. ZOMETA [Suspect]
     Dosage: 4 MG/ 5 ML IN 20 MIN
     Route: 042
     Dates: start: 20100219
  3. ZOMETA [Suspect]
     Dosage: 4 MG/ 5 ML IN 20 MIN
     Route: 042
     Dates: start: 20100312
  4. ZOMETA [Suspect]
     Dosage: 4 MG/ 5 ML IN 20 MIN
     Route: 042
     Dates: start: 20100402
  5. CHEMOTHERAPEUTICS NOS [Suspect]

REACTIONS (4)
  - BACTERIAL INFECTION [None]
  - DEHYDRATION [None]
  - MALAISE [None]
  - PYREXIA [None]
